FAERS Safety Report 8323443-2 (Version None)
Quarter: 2012Q2

REPORT INFORMATION
  Report Type: 
  Country: None (occurrence: None)
  Receive Date: 20120501
  Receipt Date: 20120423
  Transmission Date: 20120825
  Serious: Yes (Other)
  Sender: FDA-Public Use
  Company Number: GB-SP-2012-02770

PATIENT
  Sex: Female

DRUGS (2)
  1. IMMUCYST [Suspect]
     Indication: ACCIDENTAL EXPOSURE
     Route: 050
  2. INTRON A [Suspect]
     Route: 050

REACTIONS (5)
  - BRONCHITIS [None]
  - COUGH [None]
  - OCCUPATIONAL EXPOSURE TO DRUG [None]
  - DRUG DISPENSING ERROR [None]
  - LOWER RESPIRATORY TRACT INFECTION [None]
